FAERS Safety Report 25895806 (Version 1)
Quarter: 2025Q4

REPORT INFORMATION
  Report Type: Spontaneous
  Country: US (occurrence: None)
  Receive Date: 20251007
  Receipt Date: 20251007
  Transmission Date: 20260117
  Serious: Yes (Hospitalization)
  Sender: FDA-CTU
  Company Number: None

PATIENT
  Sex: Female

DRUGS (18)
  1. AMBRISENTAN [Suspect]
     Active Substance: AMBRISENTAN
     Indication: Pulmonary hypertension
     Dosage: FREQUENCY : DAILY;?
     Route: 048
  2. ALBUTEROL [Concomitant]
     Active Substance: ALBUTEROL
  3. SEROQUEL [Concomitant]
     Active Substance: QUETIAPINE FUMARATE
  4. ELIQUIS [Concomitant]
     Active Substance: APIXABAN
  5. FERROUS SULFATE [Concomitant]
     Active Substance: FERROUS SULFATE
  6. CLONAZEPAM [Concomitant]
     Active Substance: CLONAZEPAM
  7. ZOLPIDEM [Concomitant]
     Active Substance: ZOLPIDEM TARTRATE
  8. UPTRAVI [Concomitant]
     Active Substance: SELEXIPAG
  9. LEVOTHYROXINE [Concomitant]
     Active Substance: LEVOTHYROXINE
  10. LEXAPRO [Concomitant]
     Active Substance: ESCITALOPRAM OXALATE
  11. FUROSEMIDE [Concomitant]
     Active Substance: FUROSEMIDE
  12. ATORVASTATIN [Concomitant]
     Active Substance: ATORVASTATIN
  13. POTASSIUM [Concomitant]
     Active Substance: POTASSIUM
  14. GABAPENTIN [Concomitant]
     Active Substance: GABAPENTIN
  15. VITAMIN B12 [Concomitant]
     Active Substance: CYANOCOBALAMIN
  16. Spirnolactone [Concomitant]
  17. PANTOPRAZOLE [Concomitant]
     Active Substance: PANTOPRAZOLE
  18. FRUIT + VEGETABLE DAILY [Concomitant]

REACTIONS (3)
  - Illness [None]
  - Vomiting [None]
  - Therapy interrupted [None]
